FAERS Safety Report 5101044-7 (Version None)
Quarter: 2006Q3

REPORT INFORMATION
  Report Type: 
  Country: None (occurrence: None)
  Receive Date: 20060906
  Receipt Date: 20060822
  Transmission Date: 20061208
  Serious: Yes (Hospitalization)
  Sender: FDA-Public Use
  Company Number: 2006RL000312

PATIENT
  Age: 38 Year
  Sex: Female
  Weight: 72 kg

DRUGS (3)
  1. PROPRANOLOL HYDROCHLORIDE [Suspect]
     Indication: SUPRAVENTRICULAR TACHYCARDIA
     Dosage: 1.5 MG; 1X; IV
     Route: 042
  2. ADENOSINE (ADENOSNE) [Suspect]
     Indication: SUPRAVENTRICULAR TACHYCARDIA
     Dosage: IV
     Route: 042
  3. AMIODARONE (AMIODARONE) [Suspect]
     Dosage: 38 MG; QH; IV;  300 MG; X1; IV
     Route: 042

REACTIONS (5)
  - APNOEA [None]
  - BRADYCARDIA [None]
  - CARDIAC ARREST [None]
  - HAEMODYNAMIC INSTABILITY [None]
  - THERAPY NON-RESPONDER [None]
